FAERS Safety Report 7880469-0 (Version None)
Quarter: 2011Q4

REPORT INFORMATION
  Report Type: 
  Country: None (occurrence: None)
  Receive Date: 20111101
  Receipt Date: 20111020
  Transmission Date: 20120403
  Serious: Yes (Other)
  Sender: FDA-Public Use
  Company Number: PHHY2011JP94281

PATIENT
  Age: 61 Year
  Sex: Female

DRUGS (5)
  1. CAPECITABINE [Concomitant]
     Indication: NEOPLASM MALIGNANT
     Dosage: UNK UKN, UNK
  2. INCADRONIC ACID [Suspect]
     Indication: HYPERCALCAEMIA
     Dosage: 250 MG, QW2
  3. PAMIDRONATE DISODIUM [Suspect]
     Indication: HYPERCALCAEMIA OF MALIGNANCY
     Dosage: 90 MG, QMO
  4. ZOLEDRONIC ACID [Suspect]
     Indication: HYPERCALCAEMIA OF MALIGNANCY
     Dosage: 4 MG, QMO
  5. MEDROXYPROGESTERONE [Concomitant]
     Indication: NEOPLASM MALIGNANT
     Dosage: UNK UKN, UNK

REACTIONS (3)
  - PAIN [None]
  - FEMUR FRACTURE [None]
  - TUMOUR INVASION [None]
